FAERS Safety Report 5491973-7 (Version None)
Quarter: 2007Q4

REPORT INFORMATION
  Report Type: 
  Country: None (occurrence: None)
  Receive Date: 20071022
  Receipt Date: 20071016
  Transmission Date: 20080405
  Serious: Yes (Other)
  Sender: FDA-Public Use
  Company Number: A0688000A

PATIENT
  Age: 7 Year
  Sex: Female

DRUGS (4)
  1. ADVAIR DISKUS 100/50 [Suspect]
     Indication: ASTHMA
     Dosage: 1PUFF TWICE PER DAY
     Route: 055
     Dates: start: 20050901, end: 20070501
  2. SINGULAIR [Concomitant]
  3. NASONEX [Concomitant]
  4. XOPENEX [Concomitant]

REACTIONS (3)
  - BLOOD PRESSURE INCREASED [None]
  - BONE DISORDER [None]
  - WEIGHT INCREASED [None]
